FAERS Safety Report 8289550-8 (Version None)
Quarter: 2012Q2

REPORT INFORMATION
  Report Type: 
  Country: None (occurrence: None)
  Receive Date: 20120417
  Receipt Date: 20120413
  Transmission Date: 20120825
  Serious: Yes (Hospitalization, Other)
  Sender: FDA-Public Use
  Company Number: IT-BRISTOL-MYERS SQUIBB COMPANY-16483224

PATIENT
  Age: 78 Year
  Sex: Female

DRUGS (12)
  1. XANAX [Concomitant]
  2. EFFEXOR [Concomitant]
  3. COUMADIN [Suspect]
     Indication: ATRIAL FIBRILLATION
     Dosage: 1DF= 1 DOSAGE UNIT INTERR ON 24DEC2009
     Route: 048
     Dates: start: 20041224
  4. LENTO-KALIUM [Concomitant]
  5. OXYCODONE AND ACETAMINOPHEN [Concomitant]
  6. LORAZEPAM [Concomitant]
  7. RABEPRAZOLE SODIUM [Concomitant]
  8. CORDARONE [Concomitant]
     Dosage: TABS
  9. LASIX [Concomitant]
  10. CALCIUM FOLINATE [Concomitant]
  11. IMIPENEM AND CILASTATIN SODIUM [Suspect]
     Indication: SEPSIS
     Dosage: 3DF = 3 DOSAGE UNITS INTERR ON 27DEC2009
     Route: 042
     Dates: start: 20091220
  12. PERIDON [Concomitant]

REACTIONS (2)
  - HYPOCOAGULABLE STATE [None]
  - SEPSIS [None]
